FAERS Safety Report 9123390 (Version 3)
Quarter: 2013Q3

REPORT INFORMATION
  Report Type: Report from Study
  Country: US (occurrence: US)
  Receive Date: 20130227
  Receipt Date: 20130925
  Transmission Date: 20140515
  Serious: No
  Sender: FDA-Public Use
  Company Number: US-VERTEX PHARMACEUTICALS INC.-2013-002640

PATIENT
  Age: 56 Year
  Sex: Male

DRUGS (4)
  1. VX-950 (TELAPREVIR) [Suspect]
     Indication: HEPATITIS C
     Dosage: UNK
     Route: 048
     Dates: start: 20121207, end: 20130301
  2. RIBAVIRIN [Suspect]
     Indication: HEPATITIS C
     Dosage: UNK
     Dates: start: 20121207
  3. RIBAVIRIN [Suspect]
     Dosage: 600 MG, QD
  4. PEGASYS [Suspect]
     Indication: HEPATITIS C
     Dosage: UNK
     Dates: start: 20121207

REACTIONS (20)
  - Pyrexia [Not Recovered/Not Resolved]
  - Chills [Not Recovered/Not Resolved]
  - Dyspnoea [Not Recovered/Not Resolved]
  - Headache [Not Recovered/Not Resolved]
  - Eye pain [Unknown]
  - Visual impairment [Not Recovered/Not Resolved]
  - Weight increased [Not Recovered/Not Resolved]
  - Myalgia [Not Recovered/Not Resolved]
  - Constipation [Not Recovered/Not Resolved]
  - Disturbance in attention [Unknown]
  - Strabismus [Unknown]
  - Abdominal pain upper [Unknown]
  - Back pain [Recovered/Resolved]
  - Asthenia [Not Recovered/Not Resolved]
  - Fatigue [Not Recovered/Not Resolved]
  - Skin exfoliation [Not Recovered/Not Resolved]
  - Skin discolouration [Not Recovered/Not Resolved]
  - Rash [Not Recovered/Not Resolved]
  - Anaemia [Recovered/Resolved]
  - Diarrhoea [Unknown]
